FAERS Safety Report 18131465 (Version 1)
Quarter: 2020Q3

REPORT INFORMATION
  Report Type: Spontaneous
  Country: US (occurrence: US)
  Receive Date: 20200810
  Receipt Date: 20200810
  Transmission Date: 20201103
  Serious: No
  Sender: FDA-Public Use
  Company Number: US-PFIZER INC-2020301904

PATIENT
  Age: 56 Year
  Sex: Female
  Weight: 90.72 kg

DRUGS (2)
  1. SPIRONOLACTONE. [Suspect]
     Active Substance: SPIRONOLACTONE
     Indication: HYPERTENSION
     Dosage: 25 MG, DAILY
  2. SPIRONOLACTONE. [Suspect]
     Active Substance: SPIRONOLACTONE
     Dosage: 25 MG, 2X/DAY (TWO EQUALING 50 MG)

REACTIONS (1)
  - Drug ineffective [Unknown]
